FAERS Safety Report 6865832-9 (Version None)
Quarter: 2010Q3

REPORT INFORMATION
  Report Type: 
  Country: None (occurrence: None)
  Receive Date: 20100720
  Receipt Date: 20100707
  Transmission Date: 20110219
  Serious: Yes (Hospitalization)
  Sender: FDA-Public Use
  Company Number: 7010534

PATIENT
  Age: 33 Year
  Sex: Female

DRUGS (6)
  1. REBIF [Suspect]
     Indication: RELAPSING-REMITTING MULTIPLE SCLEROSIS
     Dosage: 44 MCG, 3 IN 1 WK
     Dates: start: 20080926
  2. SYNTHROID [Concomitant]
  3. NEVENAC EYE DROPS (NEPAFENAC) [Concomitant]
  4. PREDFORT EYE DROPS (PREDNIFOLONE ACETATE) [Concomitant]
  5. CYPRALEX (ESCITALOPRAM) [Concomitant]
  6. PREDNISONE [Concomitant]

REACTIONS (4)
  - COORDINATION ABNORMAL [None]
  - GALLBLADDER DISORDER [None]
  - HYPOAESTHESIA [None]
  - MULTIPLE SCLEROSIS RELAPSE [None]
